FAERS Safety Report 10568499 (Version 3)
Quarter: 2014Q4

REPORT INFORMATION
  Report Type: Report from Study
  Country: JP (occurrence: JP)
  Receive Date: 20141106
  Receipt Date: 20141210
  Transmission Date: 20150529
  Serious: Yes (Hospitalization)
  Sender: FDA-Public Use
  Company Number: PHHY2014JP141515

PATIENT
  Age: 40 Year
  Sex: Female

DRUGS (10)
  1. CYCLOPHOSPHAMIDE. [Suspect]
     Active Substance: CYCLOPHOSPHAMIDE
     Route: 065
     Dates: start: 20141112
  2. 5 FLUOROURACIL [Suspect]
     Active Substance: FLUOROURACIL
     Route: 065
     Dates: start: 20141112
  3. THYRADIN-S [Concomitant]
     Active Substance: LEVOTHYROXINE
     Indication: THYROID ADENOMA
     Route: 065
  4. HIRUDOID [Concomitant]
     Active Substance: GLYCOSAMINOGLYCANS
     Indication: PRODUCT USED FOR UNKNOWN INDICATION
     Route: 065
     Dates: start: 20141022
  5. CYCLOPHOSPHAMIDE. [Suspect]
     Active Substance: CYCLOPHOSPHAMIDE
     Indication: HER-2 POSITIVE BREAST CANCER
     Dosage: 890 MG, UNK
     Route: 042
     Dates: start: 20141022
  6. EPIRUBICIN [Suspect]
     Active Substance: EPIRUBICIN
     Route: 065
     Dates: start: 20141112
  7. AZUNOL [Concomitant]
     Active Substance: SODIUM GUALENATE
     Indication: STOMATITIS
     Route: 065
     Dates: start: 20141022
  8. EPIRUBICIN [Suspect]
     Active Substance: EPIRUBICIN
     Indication: HER-2 POSITIVE BREAST CANCER
     Dosage: 178 MG, UNK
     Route: 042
     Dates: start: 20141022
  9. ATRAX-P [Concomitant]
     Indication: ANXIETY
     Route: 065
     Dates: start: 20141022, end: 20141022
  10. 5 FLUOROURACIL [Suspect]
     Active Substance: FLUOROURACIL
     Indication: HER-2 POSITIVE BREAST CANCER
     Dosage: 890 MG, UNK
     Route: 042
     Dates: start: 20141022

REACTIONS (11)
  - Back pain [Unknown]
  - Nausea [Recovered/Resolved]
  - Blood pressure difference of extremities [Recovering/Resolving]
  - Blood pressure decreased [Recovering/Resolving]
  - Asthenia [Recovering/Resolving]
  - Body temperature decreased [Recovering/Resolving]
  - Anaemia [Recovering/Resolving]
  - Blood pressure systolic decreased [Recovered/Resolved]
  - Chest pain [Unknown]
  - Feeling abnormal [Recovering/Resolving]
  - Heart rate decreased [Recovering/Resolving]

NARRATIVE: CASE EVENT DATE: 20141022
